FAERS Safety Report 23069759 (Version 3)
Quarter: 2023Q4

REPORT INFORMATION
  Report Type: Spontaneous
  Country: AT (occurrence: AT)
  Receive Date: 20231016
  Receipt Date: 20231031
  Transmission Date: 20240109
  Serious: Yes (Other)
  Sender: FDA-Public Use
  Company Number: AT-ROCHE-2475540

PATIENT
  Age: 79 Year
  Sex: Female
  Weight: 48 kg

DRUGS (68)
  1. FULVESTRANT [Suspect]
     Active Substance: FULVESTRANT
     Indication: Breast cancer
     Dosage: 500 MG, QW
     Route: 030
     Dates: start: 20190919, end: 20191112
  2. FASLODEX [Suspect]
     Active Substance: FULVESTRANT
     Dosage: 500 MG, QW
     Route: 030
     Dates: start: 20190919
  3. FASLODEX [Suspect]
     Active Substance: FULVESTRANT
     Indication: HER2 positive breast cancer
     Dosage: UNK
     Route: 065
     Dates: start: 20191112
  4. FEMARA [Suspect]
     Active Substance: LETROZOLE
     Indication: HER2 positive breast cancer
     Dosage: 2.5 MG, QD (ON 13/JUN/2019, MOST RECENT DOSE)
     Route: 048
     Dates: start: 20181029
  5. FEMARA [Suspect]
     Active Substance: LETROZOLE
     Dosage: 3 MG, QD
     Route: 065
     Dates: start: 20181029
  6. HERCEPTIN [Suspect]
     Active Substance: TRASTUZUMAB
     Dosage: 276 MG, Q3W
     Route: 041
     Dates: start: 20181019, end: 20181019
  7. HERCEPTIN [Suspect]
     Active Substance: TRASTUZUMAB
     Dosage: 384 MG, Q3W
     Route: 041
     Dates: start: 20180928, end: 20180928
  8. HERCEPTIN [Suspect]
     Active Substance: TRASTUZUMAB
     Indication: HER2 positive breast cancer
     Dosage: 384 MG, Q3W (MOST RECENT DOSE PRIOR TO THE EVENT: 19/AUG/2019)
     Route: 041
     Dates: start: 20180810, end: 20180810
  9. IBRANCE [Suspect]
     Active Substance: PALBOCICLIB
     Indication: HER2 positive breast cancer
     Dosage: 125 MG (MOST RECENT DOSE 18/OCT/2019)
     Route: 048
     Dates: start: 20190919
  10. KADCYLA [Suspect]
     Active Substance: ADO-TRASTUZUMAB EMTANSINE
     Indication: HER2 positive breast cancer
     Dosage: 154 MG, Q3W
     Route: 041
     Dates: start: 20190704, end: 20190704
  11. NOLVADEX [Suspect]
     Active Substance: TAMOXIFEN CITRATE
     Indication: HER2 positive breast cancer
     Dosage: 20 MG
     Route: 048
     Dates: start: 20190819, end: 20190827
  12. PACLITAXEL [Suspect]
     Active Substance: PACLITAXEL
     Indication: Breast cancer
     Dosage: 114 MG, QW (113.69 MG, EVERY 1 WEEK) (MOST RECENT DOSE 14/SEP/2018)
     Route: 042
     Dates: start: 20180810
  13. PACLITAXEL [Suspect]
     Active Substance: PACLITAXEL
     Indication: Breast cancer
     Dosage: 142.11 MG, QW (MOST RECENT DOSE PRIOR TO THE EVENT: 19/OCT/2018)
     Route: 042
     Dates: start: 20180928, end: 20181005
  14. PERJETA [Suspect]
     Active Substance: PERTUZUMAB
     Indication: HER2 positive breast cancer
     Dosage: 840 MG, Q3W (MOST RECENT DOSE PRIOR TO THE EVENT: 31/AUG/2018)
     Route: 041
     Dates: start: 20180810, end: 20180810
  15. PERTUZUMAB [Suspect]
     Active Substance: PERTUZUMAB
     Indication: Breast cancer
     Dosage: 840 MILLIGRAM EVERY 3 WEEKS (MOST RECENT DOSE PRIOR TO THE EVENT: 31/AUG/2018)
     Route: 042
     Dates: start: 20180810
  16. TAMOXIFEN [Suspect]
     Active Substance: TAMOXIFEN
     Indication: Breast cancer
     Dosage: 20 MILLIGRAM
     Route: 048
     Dates: start: 20190819, end: 20190827
  17. TRASTUZUMAB [Suspect]
     Active Substance: TRASTUZUMAB
     Dosage: 276 MG, Q3W
     Route: 042
     Dates: start: 20181019, end: 20181019
  18. TRASTUZUMAB [Suspect]
     Active Substance: TRASTUZUMAB
     Dosage: 384 MG, Q3W
     Route: 042
     Dates: start: 20180928, end: 20180928
  19. TRASTUZUMAB [Suspect]
     Active Substance: TRASTUZUMAB
     Indication: Breast cancer
     Dosage: 384 MG, Q3W (MOST RECENT DOSE PRIOR TO THE EVENT: 19/AUG/2019)
     Route: 042
     Dates: start: 20180810, end: 20180831
  20. TRASTUZUMAB [Suspect]
     Active Substance: TRASTUZUMAB
     Dosage: 276 MG, QW
     Route: 065
     Dates: start: 20180810, end: 20180831
  21. TRASTUZUMAB [Suspect]
     Active Substance: TRASTUZUMAB
     Dosage: 276 MG, QW
     Route: 065
     Dates: start: 20180928, end: 20180928
  22. ADO-TRASTUZUMAB EMTANSINE [Suspect]
     Active Substance: ADO-TRASTUZUMAB EMTANSINE
     Indication: Breast cancer
     Dosage: 154 MG EVERY 3 WEEKS
     Route: 042
     Dates: start: 20190704, end: 20190704
  23. XGEVA [Suspect]
     Active Substance: DENOSUMAB
     Indication: HER2 positive breast cancer
     Dosage: 120 MG, Q4W (MOST RECENT DOSE 25/FEB/2019)
     Route: 059
     Dates: start: 20180817
  24. XGEVA [Suspect]
     Active Substance: DENOSUMAB
     Dosage: UNK
     Route: 065
  25. AMLODIPINE BESYLATE [Concomitant]
     Active Substance: AMLODIPINE BESYLATE
     Indication: Product used for unknown indication
     Dosage: UNK
     Route: 065
  26. ANTIFLAT [Concomitant]
     Indication: Product used for unknown indication
     Dosage: ONGOING = CHECKED
     Route: 065
     Dates: start: 20181126
  27. AVELOX [Concomitant]
     Active Substance: MOXIFLOXACIN HYDROCHLORIDE
     Indication: Osteonecrosis of jaw
     Dosage: ONGOING = NOT CHECKED
     Route: 065
     Dates: start: 20190919, end: 20191101
  28. AVELOX [Concomitant]
     Active Substance: MOXIFLOXACIN HYDROCHLORIDE
     Indication: Osteonecrosis of jaw
  29. CALCIUM CHLORIDE\SODIUM CHLORIDE\SODIUM PHOSPHATE, DIBASIC, ANHYDROUS\ [Concomitant]
     Active Substance: CALCIUM CHLORIDE\SODIUM CHLORIDE\SODIUM PHOSPHATE, DIBASIC, ANHYDROUS\SODIUM PHOSPHATE, MONOBASIC, A
     Indication: Mucosal inflammation
     Dosage: ONGOING = NOT CHECKED
     Route: 065
     Dates: start: 20180921
  30. CEOLAT [Concomitant]
     Indication: Product used for unknown indication
     Dosage: UNK
     Route: 065
     Dates: start: 20191115
  31. CEOLAT [Concomitant]
     Indication: Product used for unknown indication
  32. CIPROFLOXACIN [Concomitant]
     Active Substance: CIPROFLOXACIN
     Indication: Gastroenteritis radiation
     Dosage: ONGOING = NOT CHECKED
     Route: 065
     Dates: start: 20181118
  33. CIPROFLOXACIN [Concomitant]
     Active Substance: CIPROFLOXACIN
     Indication: Gastroenteritis radiation
  34. DEXABENE [Concomitant]
     Indication: Product used for unknown indication
     Dosage: UNK
     Route: 065
  35. LOPERAMIDE HYDROCHLORIDE [Concomitant]
     Active Substance: LOPERAMIDE HYDROCHLORIDE
     Indication: Diarrhoea
     Dosage: ONGOING = CHECKED
     Route: 065
     Dates: start: 20181127
  36. LOPERAMIDE HYDROCHLORIDE [Concomitant]
     Active Substance: LOPERAMIDE HYDROCHLORIDE
     Indication: Diarrhoea
  37. DEXAMETHASONE [Concomitant]
     Active Substance: DEXAMETHASONE
     Indication: Product used for unknown indication
     Dosage: UNK
     Route: 065
     Dates: start: 20191115
  38. Guttalax [Concomitant]
     Indication: Product used for unknown indication
     Dosage: UNK
     Route: 065
     Dates: start: 20191115
  39. KONAKION [Concomitant]
     Active Substance: PHYTONADIONE
     Indication: Product used for unknown indication
     Dosage: UNK
     Route: 065
     Dates: start: 20191115
  40. KYTRIL [Concomitant]
     Active Substance: GRANISETRON HYDROCHLORIDE
     Indication: Product used for unknown indication
     Dosage: UNK
     Route: 065
  41. LACTULOSE [Concomitant]
     Active Substance: LACTULOSE
     Indication: Product used for unknown indication
     Dosage: UNK (ONGOING = NOT CHECKED)
     Route: 065
     Dates: end: 20191115
  42. LAFENE [Concomitant]
     Indication: Product used for unknown indication
     Dosage: UNK (ONGOING = NOT CHECKED)
     Route: 065
     Dates: end: 20191115
  43. LASIX [Concomitant]
     Active Substance: FUROSEMIDE
     Indication: Oedema peripheral
     Dosage: UNK
     Route: 065
     Dates: start: 20191106, end: 20191115
  44. POLYETHYLENE GLYCOLS [Concomitant]
     Active Substance: POLYETHYLENE GLYCOLS
     Indication: Product used for unknown indication
     Dosage: UNK
     Route: 065
  45. POLYETHYLENE GLYCOL 3350\POTASSIUM CHLORIDE\SODIUM BICARBONATE\SODIUM [Concomitant]
     Active Substance: POLYETHYLENE GLYCOL 3350\POTASSIUM CHLORIDE\SODIUM BICARBONATE\SODIUM CHLORIDE
     Indication: Product used for unknown indication
     Dosage: UNK
     Route: 065
     Dates: start: 20191115
  46. MORPHINE [Concomitant]
     Active Substance: MORPHINE
     Indication: Dyspnoea
     Dosage: UNK
     Route: 065
     Dates: start: 20191111
  47. MYCOSTATIN [Concomitant]
     Active Substance: NYSTATIN
     Indication: Mucosal inflammation
     Dosage: ONGOING = NOT CHECKED
     Route: 065
     Dates: start: 20190819
  48. NOVALGINA [Concomitant]
     Active Substance: ACETAMINOPHEN\CAFFEINE
     Indication: Product used for unknown indication
     Dosage: ONGOING = NOT CHECKED
     Route: 065
     Dates: start: 20181126, end: 20191103
  49. NOVALGINA [Concomitant]
     Active Substance: ACETAMINOPHEN\CAFFEINE
     Indication: Product used for unknown indication
  50. PANTOPRAZOLE SODIUM [Concomitant]
     Active Substance: PANTOPRAZOLE SODIUM
     Indication: Abdominal pain upper
     Dosage: ONGOING = NOT CHECKED
     Route: 065
     Dates: start: 20181109, end: 20191101
  51. MEFENAMIC ACID [Concomitant]
     Active Substance: MEFENAMIC ACID
     Indication: Arthralgia
     Dosage: ONGOING = CHECKED
     Route: 065
     Dates: start: 20180914
  52. MEFENAMIC ACID [Concomitant]
     Active Substance: MEFENAMIC ACID
     Indication: Arthralgia
  53. Paspertin [Concomitant]
     Indication: Nausea
     Dosage: UNK
     Route: 065
     Dates: start: 20191108, end: 20191115
  54. DEXIBUPROFEN [Concomitant]
     Active Substance: DEXIBUPROFEN
     Indication: Osteonecrosis of jaw
     Dosage: UNK
     Route: 065
     Dates: start: 20190725, end: 20191015
  55. DEXIBUPROFEN [Concomitant]
     Active Substance: DEXIBUPROFEN
     Indication: Osteonecrosis of jaw
  56. TAZOBACTAM [Concomitant]
     Active Substance: TAZOBACTAM
     Indication: Infection
     Dosage: ONGOING = NOT CHECKED
     Route: 065
     Dates: start: 20191102, end: 20191113
  57. TAZOBACTAM [Concomitant]
     Active Substance: TAZOBACTAM
     Indication: Infection
  58. Temesta [Concomitant]
     Dosage: ONGOING = CHECKED
     Route: 065
  59. Temesta [Concomitant]
     Dosage: ONGOING = CHECKED
     Route: 065
  60. Temesta [Concomitant]
     Dosage: ONGOING = CHECKED
     Route: 065
  61. Temesta [Concomitant]
     Indication: Product used for unknown indication
     Dosage: UNK
     Route: 065
  62. TRAZODONE HYDROCHLORIDE [Concomitant]
     Active Substance: TRAZODONE HYDROCHLORIDE
     Dosage: UNK (ONGOING = CHECKED)
     Route: 065
  63. TRAZODONE HYDROCHLORIDE [Concomitant]
     Active Substance: TRAZODONE HYDROCHLORIDE
     Dosage: UNK (ONGOING = CHECKED)
     Route: 065
  64. TRAZODONE HYDROCHLORIDE [Concomitant]
     Active Substance: TRAZODONE HYDROCHLORIDE
     Dosage: UNK (ONGOING = CHECKED)
     Route: 065
  65. TRAZODONE HYDROCHLORIDE [Concomitant]
     Active Substance: TRAZODONE HYDROCHLORIDE
     Indication: Product used for unknown indication
     Dosage: UNK
     Route: 065
  66. RANITIDINE HYDROCHLORIDE [Concomitant]
     Active Substance: RANITIDINE HYDROCHLORIDE
     Indication: Product used for unknown indication
     Dosage: UNK
     Route: 065
  67. MORPHINE [Concomitant]
     Active Substance: MORPHINE
     Indication: Dyspnoea
     Dosage: UNK
     Route: 065
     Dates: start: 20191111
  68. MORPHINE [Concomitant]
     Active Substance: MORPHINE
     Indication: Dyspnoea

REACTIONS (5)
  - Ascites [Recovering/Resolving]
  - Underdose [Unknown]
  - Overdose [Unknown]
  - White blood cell count decreased [Recovered/Resolved]
  - Neutrophil count decreased [Recovered/Resolved]

NARRATIVE: CASE EVENT DATE: 20191004
